FAERS Safety Report 9225295 (Version 1)
Quarter: 2013Q1

REPORT INFORMATION
  Report Type: Spontaneous
  Country: US (occurrence: None)
  Receive Date: 20120926
  Receipt Date: 20120926
  Transmission Date: 20140127
  Serious: Yes (Hospitalization)
  Sender: FDA-Public Use
  Company Number: 1000027205

PATIENT
  Age: 49 Year
  Sex: Male

DRUGS (1)
  1. CAMPRAL [Suspect]
     Indication: ALCOHOL PROBLEM
     Dates: start: 2010, end: 201107

REACTIONS (2)
  - Renal failure [None]
  - Diarrhoea [None]
